FAERS Safety Report 6154091-0 (Version None)
Quarter: 2009Q2

REPORT INFORMATION
  Report Type: 
  Country: None (occurrence: None)
  Receive Date: 20090414
  Receipt Date: 20090402
  Transmission Date: 20091009
  Serious: Yes (Hospitalization, Disabling, Other)
  Sender: FDA-Public Use
  Company Number: PHHY2009BR12583

PATIENT
  Age: 65 Year
  Sex: Male

DRUGS (4)
  1. EXELON [Suspect]
     Indication: DEMENTIA ALZHEIMER'S TYPE
     Dosage: 9 MG/5CM2, 1 PATCH A DAY
     Route: 062
     Dates: start: 20090201
  2. MEMANTINE HCL [Concomitant]
     Indication: DEMENTIA ALZHEIMER'S TYPE
     Dosage: UNK
     Route: 048
  3. METFORMIN HCL [Concomitant]
     Indication: DIABETES MELLITUS
     Dosage: 850 MG, BID
     Route: 048
  4. NOVONORM [Concomitant]
     Dosage: 2 MG, TID
     Route: 048

REACTIONS (3)
  - CONVULSION [None]
  - GAIT DISTURBANCE [None]
  - HYPERTENSION [None]
